FAERS Safety Report 7510924-4 (Version None)
Quarter: 2011Q2

REPORT INFORMATION
  Report Type: 
  Country: None (occurrence: None)
  Receive Date: 20110531
  Receipt Date: 20110519
  Transmission Date: 20111010
  Serious: No
  Sender: FDA-Public Use
  Company Number: US-BIOGENIDEC-2011BI019596

PATIENT
  Sex: Female

DRUGS (2)
  1. TYSABRI [Suspect]
     Indication: MULTIPLE SCLEROSIS
     Route: 042
     Dates: start: 20101129
  2. TYSABRI [Suspect]
     Route: 042
     Dates: start: 20090421, end: 20100514

REACTIONS (2)
  - INFLUENZA [None]
  - NASOPHARYNGITIS [None]
